FAERS Safety Report 6887372-3 (Version None)
Quarter: 2010Q3

REPORT INFORMATION
  Report Type: 
  Country: None (occurrence: None)
  Receive Date: 20100730
  Receipt Date: 20091105
  Transmission Date: 20110219
  Serious: No
  Sender: FDA-Public Use
  Company Number: A0815389A

PATIENT
  Age: 43 Year
  Sex: Female

DRUGS (6)
  1. IMITREX [Suspect]
     Indication: MIGRAINE
     Route: 048
     Dates: start: 20030101, end: 20030101
  2. IMITREX [Suspect]
     Dosage: 4MG AS REQUIRED
     Route: 058
     Dates: start: 20030101
  3. EPIDURAL [Concomitant]
  4. GABAPENTIN [Concomitant]
  5. TOPIRAMATE [Concomitant]
  6. UNKNOWN MEDICATION [Concomitant]

REACTIONS (1)
  - DRUG INEFFECTIVE [None]
